FAERS Safety Report 7864921-X (Version None)
Quarter: 2011Q4

REPORT INFORMATION
  Report Type: 
  Country: None (occurrence: None)
  Receive Date: 20111028
  Receipt Date: 20100914
  Transmission Date: 20120403
  Serious: No
  Sender: FDA-Public Use
  Company Number: US-GLAXOSMITHKLINE-A0881822A

PATIENT
  Sex: Female

DRUGS (3)
  1. ADVAIR DISKUS 100/50 [Suspect]
     Indication: ASTHMA
     Route: 055
  2. UNSPECIFIED MEDICATION [Suspect]
     Indication: ASTHMA
     Route: 055
     Dates: start: 20100801, end: 20100801
  3. SYMBICORT [Suspect]
     Indication: ASTHMA

REACTIONS (2)
  - APHONIA [None]
  - LARYNGITIS [None]
